FAERS Safety Report 7927604-3 (Version None)
Quarter: 2011Q4

REPORT INFORMATION
  Report Type: 
  Country: None (occurrence: None)
  Receive Date: 20111118
  Receipt Date: 20111114
  Transmission Date: 20120403
  Serious: Yes (Other)
  Sender: FDA-Public Use
  Company Number: FR-GENZYME-THYM-1002839

PATIENT
  Sex: Male
  Weight: 71 kg

DRUGS (16)
  1. FLUDARA [Suspect]
     Dosage: 55.62 MG, QD
     Route: 065
     Dates: start: 20111011, end: 20111011
  2. POLARAMINE [Concomitant]
     Indication: MULTIPLE MYELOMA
     Dosage: 10 MG, QD
     Route: 042
     Dates: start: 20111010, end: 20111012
  3. PROTON PUMP INHIBITORS [Concomitant]
     Indication: PRODUCT USED FOR UNKNOWN INDICATION
     Dosage: 40 MG, QD
     Dates: start: 20111012
  4. THYMOGLOBULIN [Suspect]
     Indication: MULTIPLE MYELOMA
     Dosage: 145.6 MG, QD
     Route: 042
     Dates: start: 20111011, end: 20111011
  5. FLUDARA [Suspect]
     Indication: MULTIPLE MYELOMA
     Dosage: 55.62 MG, QD
     Route: 065
     Dates: start: 20111007, end: 20111009
  6. TRACITRANS [Concomitant]
     Indication: PRODUCT USED FOR UNKNOWN INDICATION
     Dosage: 10 ML, QD
     Dates: start: 20111006, end: 20111006
  7. PANTOPRAZOLE [Concomitant]
     Indication: PRODUCT USED FOR UNKNOWN INDICATION
     Dosage: 20 MG, UNK
     Dates: start: 20111007, end: 20111007
  8. BUSULFAN [Concomitant]
     Indication: MULTIPLE MYELOMA
     Dosage: 58.24 MG, BID
     Route: 051
     Dates: start: 20111008, end: 20111009
  9. MAGNESIUM [Concomitant]
     Indication: PRODUCT USED FOR UNKNOWN INDICATION
     Dosage: 10 ML, QD
     Dates: start: 20111006, end: 20111006
  10. VALIUM [Concomitant]
     Indication: PRODUCT USED FOR UNKNOWN INDICATION
     Dosage: 10 MG, QD
     Route: 042
     Dates: start: 20111008, end: 20111010
  11. CERNEVIT-12 [Concomitant]
     Indication: PRODUCT USED FOR UNKNOWN INDICATION
     Dosage: 5 ML, QD
     Dates: start: 20111006, end: 20111006
  12. THYMOGLOBULIN [Suspect]
     Dosage: 2 MG, QD
     Route: 042
  13. ZOFRAN [Concomitant]
     Indication: VOMITING
     Dosage: UNK
     Dates: start: 20111007, end: 20111012
  14. DELURSAN [Concomitant]
     Indication: PRODUCT USED FOR UNKNOWN INDICATION
     Dosage: 500 MG, BID
     Route: 048
     Dates: start: 20111007, end: 20111007
  15. ALLOPURINOL [Concomitant]
     Indication: PRODUCT USED FOR UNKNOWN INDICATION
     Dosage: 300 MG, QD
     Dates: start: 20111007, end: 20111007
  16. SOLU-MEDROL [Concomitant]
     Indication: MULTIPLE MYELOMA
     Dosage: 20 MG, QD
     Dates: start: 20111010, end: 20111013

REACTIONS (1)
  - CYTOLYTIC HEPATITIS [None]
